FAERS Safety Report 21446562 (Version 1)
Quarter: 2022Q4

REPORT INFORMATION
  Report Type: Spontaneous
  Country: US (occurrence: None)
  Receive Date: 20221011
  Receipt Date: 20221011
  Transmission Date: 20230112
  Serious: Yes (Hospitalization)
  Sender: FDA-Public Use
  Company Number: None

PATIENT
  Age: 71 Year
  Sex: Male

DRUGS (2)
  1. APIXABAN [Suspect]
     Active Substance: APIXABAN
     Indication: Atrial fibrillation
     Dosage: 5 MB BID PO?
     Route: 048
     Dates: start: 20191101
  2. ASPIRIN [Suspect]
     Active Substance: ASPIRIN
     Indication: Cardiac failure congestive
     Dosage: 81 MG EVERY DAY?
     Dates: start: 20190201

REACTIONS (3)
  - Dyspnoea [None]
  - Haemoglobin decreased [None]
  - Gastric haemorrhage [None]

NARRATIVE: CASE EVENT DATE: 20220926
